FAERS Safety Report 7964084-6 (Version None)
Quarter: 2011Q4

REPORT INFORMATION
  Report Type: 
  Country: None (occurrence: None)
  Receive Date: 20111208
  Receipt Date: 20111202
  Transmission Date: 20120403
  Serious: Yes (Hospitalization)
  Sender: FDA-Public Use
  Company Number: AU-UCBSA-031263

PATIENT
  Age: 67 Year
  Sex: Female

DRUGS (9)
  1. ATENOLOL [Concomitant]
     Route: 048
  2. MORPHINE SULFATE SUSTAINED RELEASE [Concomitant]
     Route: 048
  3. DIAZEPAM [Concomitant]
     Dosage: 5-10 MG DAILY PRN
  4. CIMZIA [Suspect]
     Indication: RHEUMATOID ARTHRITIS
     Route: 058
     Dates: start: 20101112, end: 20101217
  5. OXYCODONE HYDZROCHLORIDE [Concomitant]
     Route: 048
  6. METHOTREXATE [Concomitant]
     Indication: RHEUMATOID ARTHRITIS
     Route: 048
  7. FOLIC ACID [Concomitant]
     Route: 048
  8. CELECOXIB [Concomitant]
     Indication: RHEUMATOID ARTHRITIS
     Dosage: OD PRN
     Route: 048
  9. PREDNISOLONE [Concomitant]
     Route: 048

REACTIONS (1)
  - CELLULITIS [None]
